FAERS Safety Report 16659616 (Version 1)
Quarter: 2019Q3

REPORT INFORMATION
  Report Type: Spontaneous
  Country: ES (occurrence: ES)
  Receive Date: 20190802
  Receipt Date: 20190802
  Transmission Date: 20191004
  Serious: Yes (Life-Threatening)
  Sender: FDA-Public Use
  Company Number: ES-TEVA-2019-ES-1086924

PATIENT
  Age: 53 Year
  Sex: Female

DRUGS (2)
  1. LORAZEPAM 1 MG COMPRIMIDO BUCODISPERSABLE [Concomitant]
  2. OLANZAPINA (2770A) [Suspect]
     Active Substance: OLANZAPINE
     Indication: SCHIZOAFFECTIVE DISORDER
     Dates: start: 2012

REACTIONS (1)
  - Post procedural complication [Recovered/Resolved]

NARRATIVE: CASE EVENT DATE: 20190711
